FAERS Safety Report 8815498 (Version 2)
Quarter: 2012Q4

REPORT INFORMATION
  Report Type: 
  Country: JP (occurrence: JP)
  Receive Date: 20120928
  Receipt Date: 20121018
  Transmission Date: 20130627
  Serious: Yes (Death)
  Sender: FDA-Public Use
  Company Number: JP-GLAXOSMITHKLINE-B0833197A

PATIENT
  Age: 85 Year
  Sex: Female

DRUGS (6)
  1. SAMTIREL [Suspect]
     Indication: PNEUMOCYSTIS JIROVECI PNEUMONIA
     Dosage: 750MG Twice per day
     Route: 048
     Dates: start: 20120710, end: 20120725
  2. SAMTIREL [Suspect]
     Indication: ANTIFUNGAL PROPHYLAXIS
     Dosage: 1500MG Per day
     Route: 048
     Dates: start: 20120726, end: 20120817
  3. ISONIAZID [Suspect]
     Indication: TUBERCULOSIS
     Dosage: 1IUAX Three times per day
     Route: 065
     Dates: start: 2011, end: 20110628
  4. ISONIAZID [Suspect]
     Indication: TUBERCULOSIS
     Dosage: 1IUAX Three times per day
     Route: 065
     Dates: start: 20110727
  5. ALFAROL [Concomitant]
     Indication: OSTEOPOROSIS
     Dosage: 50MG Per day
     Route: 048
     Dates: start: 20120726, end: 20120730
  6. FORTEO [Concomitant]
     Indication: OSTEOPOROSIS
     Dosage: 20MCG Per day
     Route: 058
     Dates: start: 20120726, end: 20120811

REACTIONS (7)
  - Hepatic failure [Fatal]
  - Liver disorder [Unknown]
  - Jaundice [Unknown]
  - Hepatic cyst [Unknown]
  - Renal atrophy [Unknown]
  - Renal cyst [Unknown]
  - Gallbladder oedema [Unknown]
